FAERS Safety Report 12636171 (Version 1)
Quarter: 2016Q3

REPORT INFORMATION
  Report Type: Spontaneous
  Country: US (occurrence: US)
  Receive Date: 20160809
  Receipt Date: 20160809
  Transmission Date: 20161109
  Serious: No
  Sender: FDA-Public Use
  Company Number: US-BEH-2016060515

PATIENT
  Age: 70 Year
  Sex: Male
  Weight: 74.84 kg

DRUGS (22)
  1. SODIUM CHLORIDE. [Concomitant]
     Active Substance: SODIUM CHLORIDE
  2. LEVOFLOXACIN. [Concomitant]
     Active Substance: LEVOFLOXACIN
  3. JANUVIA [Concomitant]
     Active Substance: SITAGLIPTIN PHOSPHATE
  4. SPIRIVA [Concomitant]
     Active Substance: TIOTROPIUM BROMIDE MONOHYDRATE
  5. ZEMAIRA [Suspect]
     Active Substance: .ALPHA.1-PROTEINASE INHIBITOR HUMAN
     Indication: ALPHA-1 ANTI-TRYPSIN DEFICIENCY
     Dosage: 60 MG/KG, QW
     Route: 042
  6. OMEPRAZOLE. [Concomitant]
     Active Substance: OMEPRAZOLE
  7. DILTIAZEM. [Concomitant]
     Active Substance: DILTIAZEM
  8. DIPHENHYDRAMINE. [Concomitant]
     Active Substance: DIPHENHYDRAMINE
  9. LIDOCAINE. [Concomitant]
     Active Substance: LIDOCAINE
  10. NORMAL SALINE [Concomitant]
     Active Substance: SODIUM CHLORIDE
  11. OXYGEN. [Concomitant]
     Active Substance: OXYGEN
  12. LISINOPRIL. [Concomitant]
     Active Substance: LISINOPRIL
  13. CRESTOR [Concomitant]
     Active Substance: ROSUVASTATIN CALCIUM
  14. ASPIRIN EC [Concomitant]
     Active Substance: ASPIRIN
  15. SINGULAIR [Concomitant]
     Active Substance: MONTELUKAST SODIUM
  16. EPIPEN [Concomitant]
     Active Substance: EPINEPHRINE
  17. PREDNISONE. [Concomitant]
     Active Substance: PREDNISONE
  18. METFORMIN [Concomitant]
     Active Substance: METFORMIN HYDROCHLORIDE
  19. ADVAIR HFA [Concomitant]
     Active Substance: FLUTICASONE PROPIONATE\SALMETEROL XINAFOATE
  20. GLIPIZIDE ER [Concomitant]
     Active Substance: GLIPIZIDE
  21. DIGOXIN. [Concomitant]
     Active Substance: DIGOXIN
  22. TESSALON [Concomitant]
     Active Substance: BENZONATATE

REACTIONS (2)
  - Infection [Not Recovered/Not Resolved]
  - Infection [Recovering/Resolving]

NARRATIVE: CASE EVENT DATE: 201511
